FAERS Safety Report 25663764 (Version 1)
Quarter: 2025Q3

REPORT INFORMATION
  Report Type: Spontaneous
  Country: EU (occurrence: EU)
  Receive Date: 20250811
  Receipt Date: 20250811
  Transmission Date: 20251021
  Serious: Yes (Disabling, Other)
  Sender: AVERITAS
  Company Number: None

PATIENT
  Age: 53 Year
  Sex: Male
  Weight: 115 kg

DRUGS (2)
  1. CAPSAICIN [Suspect]
     Active Substance: CAPSAICIN
     Indication: Neuralgia
     Route: 003
     Dates: start: 20250707, end: 20250707
  2. CAPSAICIN [Suspect]
     Active Substance: CAPSAICIN
     Route: 003
     Dates: start: 20250721, end: 20250721

REACTIONS (1)
  - Neuralgia [Not Recovered/Not Resolved]
